FAERS Safety Report 4749169-X (Version None)
Quarter: 2005Q3

REPORT INFORMATION
  Report Type: 
  Country: None (occurrence: None)
  Receive Date: 20050817
  Receipt Date: 20050808
  Transmission Date: 20060218
  Serious: Yes (Hospitalization)
  Sender: FDA-Public Use
  Company Number: 2005-131358-NL

PATIENT
  Age: 26 Year
  Sex: Female

DRUGS (6)
  1. MIRTAZAPINE [Suspect]
     Indication: DEPRESSION
     Dosage: 45 MG ORAL
     Route: 048
     Dates: start: 20041004, end: 20041201
  2. HALOPERIDOL [Suspect]
     Indication: DEPRESSION
     Dosage: 6 MG ORAL
     Route: 048
     Dates: start: 20041004, end: 20041201
  3. IRON [Concomitant]
  4. POTASSIUM CHLORIDE [Concomitant]
  5. MAGNESIUM OXIDE [Concomitant]
  6. LORAZEPAM [Concomitant]

REACTIONS (2)
  - CONDITION AGGRAVATED [None]
  - PLATELET COUNT DECREASED [None]
